FAERS Safety Report 8287491-3 (Version None)
Quarter: 2012Q2

REPORT INFORMATION
  Report Type: 
  Country: None (occurrence: None)
  Receive Date: 20120416
  Receipt Date: 20120410
  Transmission Date: 20120825
  Serious: No
  Sender: FDA-Public Use
  Company Number: US-PFIZER INC-2010092214

PATIENT
  Sex: Female
  Weight: 64.399 kg

DRUGS (14)
  1. VITAMIN B COMPLEX CAP [Concomitant]
     Dosage: UNK
  2. TIKOSYN [Suspect]
     Dosage: 250 UG, 2X/DAY
     Dates: start: 20101110
  3. COUMADIN [Suspect]
     Indication: ANTICOAGULANT THERAPY
     Dosage: 1X/DAY
     Route: 048
     Dates: start: 20090201
  4. LUNESTA [Concomitant]
     Indication: SLEEP DISORDER
     Dosage: 3 MG, 1X/DAY
     Route: 048
     Dates: start: 19900101
  5. TIKOSYN [Suspect]
     Indication: ATRIAL FIBRILLATION
     Dosage: 250 UG, 2X/DAY
     Route: 048
     Dates: start: 20100301
  6. ZOLOFT [Concomitant]
     Indication: DEPRESSION
     Dosage: 25 MG, UNK
     Route: 048
     Dates: start: 20100301
  7. ASCORBIC ACID [Concomitant]
     Dosage: UNK
  8. PREMARIN [Concomitant]
     Indication: BLADDER CANCER
     Dosage: 0.3 MG, UNK
     Route: 048
     Dates: start: 19870101
  9. CHONDROITIN/GLUCOSAMINE [Concomitant]
     Indication: BONE DISORDER
  10. MULTI-VITAMINS [Concomitant]
     Dosage: UNK
  11. ACETYLSALICYLIC ACID [Concomitant]
     Indication: CARDIAC DISORDER
     Dosage: 81 MG, 1X/DAY
  12. DILTIAZEM HCL [Suspect]
     Indication: CARDIAC DISORDER
     Dosage: 120 MG, 2X/DAY
  13. COUMADIN [Suspect]
     Indication: BLOOD DISORDER
     Dosage: 5 MG, DAILY
     Dates: start: 20100101
  14. CHONDROITIN/GLUCOSAMINE [Concomitant]
     Indication: ARTHRITIS
     Dosage: UNK

REACTIONS (3)
  - ANXIETY [None]
  - HEADACHE [None]
  - DRUG DOSE OMISSION [None]
